FAERS Safety Report 14665032 (Version 1)
Quarter: 2018Q1

REPORT INFORMATION
  Report Type: Spontaneous
  Country: US (occurrence: US)
  Receive Date: 20180319
  Receipt Date: 20180319
  Transmission Date: 20180509
  Serious: Yes (Life-Threatening, Hospitalization)
  Sender: FDA-Public Use
  Company Number: None

PATIENT
  Age: 76 Year
  Sex: Male
  Weight: 81 kg

DRUGS (12)
  1. CARBIDOPA/LEVODOPA [Concomitant]
     Active Substance: CARBIDOPA\LEVODOPA
     Dates: start: 20180220, end: 20180224
  2. ACETAMINOPHEN. [Concomitant]
     Active Substance: ACETAMINOPHEN
     Dates: start: 20180220, end: 20180224
  3. WARFARIN [Concomitant]
     Active Substance: WARFARIN
     Dates: start: 20180220, end: 20180221
  4. COLCHICINE. [Concomitant]
     Active Substance: COLCHICINE
     Dates: start: 20180220, end: 20180221
  5. DIGOXIN. [Concomitant]
     Active Substance: DIGOXIN
     Dates: start: 20180220, end: 20180224
  6. PIPERACILLIN/TAZOBACTAM [Suspect]
     Active Substance: PIPERACILLIN SODIUM\TAZOBACTAM SODIUM
     Indication: SEPSIS
     Dosage: ?          OTHER FREQUENCY:EVERY EIGHT HOURS;?
     Route: 042
     Dates: start: 20180219, end: 20180221
  7. VANCOMYCIN [Suspect]
     Active Substance: VANCOMYCIN
     Indication: SEPSIS
     Route: 042
     Dates: start: 20180219, end: 20180221
  8. TAMSULOSIN [Concomitant]
     Active Substance: TAMSULOSIN
     Dates: start: 20180220, end: 20180224
  9. DILTIAZEM. [Concomitant]
     Active Substance: DILTIAZEM
     Dates: start: 20180220, end: 20180220
  10. GUAIFENESIN. [Concomitant]
     Active Substance: GUAIFENESIN
     Dates: start: 20180220, end: 20180224
  11. LACTULOSE. [Concomitant]
     Active Substance: LACTULOSE
     Dates: start: 20180220, end: 20180224
  12. METOPROLOL TARTRATE. [Concomitant]
     Active Substance: METOPROLOL TARTRATE
     Dates: start: 20180220, end: 20180224

REACTIONS (1)
  - Thrombocytopenia [None]

NARRATIVE: CASE EVENT DATE: 20180221
